FAERS Safety Report 26082371 (Version 1)
Quarter: 2025Q4

REPORT INFORMATION
  Report Type: Spontaneous
  Country: US (occurrence: US)
  Receive Date: 20251124
  Receipt Date: 20251124
  Transmission Date: 20260118
  Serious: No
  Sender: MERCK SHARP & DOHME LLC
  Company Number: US-009507513-2345443

PATIENT
  Age: 1 Month

DRUGS (1)
  1. ENFLONSIA [Suspect]
     Active Substance: CLESROVIMAB-CFOR
     Indication: Immunisation
     Dosage: SINGLE DOSE

REACTIONS (2)
  - Injection site pain [Unknown]
  - Injection site swelling [Unknown]

NARRATIVE: CASE EVENT DATE: 20251001
